FAERS Safety Report 7778090-8 (Version None)
Quarter: 2011Q3

REPORT INFORMATION
  Report Type: 
  Country: None (occurrence: None)
  Receive Date: 20110922
  Receipt Date: 20110902
  Transmission Date: 20111222
  Serious: Yes (Hospitalization, Other)
  Sender: FDA-Public Use
  Company Number: UCM201109-000065

PATIENT
  Age: 44 Year
  Sex: Male

DRUGS (3)
  1. OLANZAPINE [Suspect]
  2. ACETAMINOPHEN [Suspect]
  3. BISOPROLOL FUMARATE [Suspect]

REACTIONS (17)
  - ALANINE AMINOTRANSFERASE INCREASED [None]
  - FALL [None]
  - BRADYCARDIA [None]
  - LUNG DISORDER [None]
  - SEPSIS [None]
  - ASPERGILLOMA [None]
  - ASTHENIA [None]
  - TOXICITY TO VARIOUS AGENTS [None]
  - HYPOTHERMIA [None]
  - MULTIPLE DRUG OVERDOSE INTENTIONAL [None]
  - HYPOTENSION [None]
  - COMA SCALE ABNORMAL [None]
  - LOBAR PNEUMONIA [None]
  - METABOLIC DISORDER [None]
  - HYPOGLYCAEMIA [None]
  - SUICIDE ATTEMPT [None]
  - HYPOPHAGIA [None]
